FAERS Safety Report 16842916 (Version 3)
Quarter: 2019Q4

REPORT INFORMATION
  Report Type: Spontaneous
  Country: PL (occurrence: PL)
  Receive Date: 20190924
  Receipt Date: 20191003
  Transmission Date: 20200122
  Serious: Yes (Death)
  Sender: FDA-Public Use
  Company Number: PL-ABBVIE-19K-129-2936182-00

PATIENT
  Sex: Male
  Weight: 72 kg

DRUGS (10)
  1. VENCLYXTO [Suspect]
     Active Substance: VENETOCLAX
     Route: 048
     Dates: start: 20190828, end: 20190901
  2. BISOPROLOL [Concomitant]
     Active Substance: BISOPROLOL
     Indication: HYPERTENSION
     Route: 048
     Dates: start: 2011, end: 201909
  3. VENCLYXTO [Suspect]
     Active Substance: VENETOCLAX
     Route: 048
     Dates: start: 20190820, end: 20190827
  4. VENCLYXTO [Suspect]
     Active Substance: VENETOCLAX
     Indication: CHRONIC LYMPHOCYTIC LEUKAEMIA
     Route: 048
     Dates: start: 20190813, end: 20190819
  5. LORISTA [Concomitant]
     Active Substance: LOSARTAN POTASSIUM
     Indication: HYPERTENSION
     Dosage: 1X50+12,5
     Route: 048
     Dates: start: 2011, end: 201909
  6. LAMIVUDINE. [Concomitant]
     Active Substance: LAMIVUDINE
     Indication: HEPATITIS B
     Route: 048
     Dates: start: 201909
  7. VENCLYXTO [Suspect]
     Active Substance: VENETOCLAX
     Route: 048
     Dates: start: 20190902, end: 20190911
  8. FLUTAMIDE. [Concomitant]
     Active Substance: FLUTAMIDE
     Indication: PROSTATE CANCER
     Route: 048
     Dates: start: 2011, end: 201909
  9. ELIGARD [Concomitant]
     Active Substance: LEUPROLIDE ACETATE
     Indication: PROSTATE CANCER
     Dosage: ONE TIME ADMINISTRATION
     Dates: start: 20190806, end: 20190806
  10. ORNITHINE [Concomitant]
     Active Substance: ORNITHINE
     Indication: HEPATIC FAILURE
     Route: 042
     Dates: start: 20190816, end: 201909

REACTIONS (2)
  - Hepatitis B reactivation [Fatal]
  - Hepatic failure [Fatal]
